FAERS Safety Report 23197027 (Version 4)
Quarter: 2024Q2

REPORT INFORMATION
  Report Type: Spontaneous
  Country: CA (occurrence: CA)
  Receive Date: 20231117
  Receipt Date: 20240404
  Transmission Date: 20240716
  Serious: Yes (Other)
  Sender: FDA-Public Use
  Company Number: CA-PFIZER INC-202300362813

PATIENT
  Age: 13 Year
  Sex: Male

DRUGS (13)
  1. SOMATROPIN [Suspect]
     Active Substance: SOMATROPIN
     Indication: Short stature
     Dosage: 2 MG, EVERY 6 DAY
     Route: 058
     Dates: start: 20230223, end: 2023
  2. SOMATROPIN [Suspect]
     Active Substance: SOMATROPIN
     Dosage: 1 DF, GOQUICK 12MG PEN 2.1 DOSING 6 DAYS/WEEK
     Route: 058
     Dates: start: 2023, end: 2023
  3. SOMATROPIN [Suspect]
     Active Substance: SOMATROPIN
     Dosage: 1 DF, 2.25 MG 6 TIMES/WEEK (0.3 MG/KG/WEEK)
     Route: 058
     Dates: start: 2023
  4. LEVOTHYROXINE [Concomitant]
     Active Substance: LEVOTHYROXINE\LEVOTHYROXINE SODIUM
     Dosage: 88 MG 5X/WEEK (MON-FRI)
  5. LEVOTHYROXINE [Concomitant]
     Active Substance: LEVOTHYROXINE\LEVOTHYROXINE SODIUM
     Dosage: 75 UG (SAT AND SUN)
  6. LISDEXAMFETAMINE [Concomitant]
     Active Substance: LISDEXAMFETAMINE
     Dosage: 60 MG
  7. CALCITRIOL [Concomitant]
     Active Substance: CALCITRIOL
     Dosage: 0.5 UG
  8. CHOLECALCIFEROL [Concomitant]
     Active Substance: CHOLECALCIFEROL
     Dosage: 1 (UNIT UNKNOWN)
  9. CHOLECALCIFEROL [Concomitant]
     Active Substance: CHOLECALCIFEROL
     Dosage: UNK
  10. ACETAMINOPHEN [Concomitant]
     Active Substance: ACETAMINOPHEN
     Dosage: 325 MG, AS NEEDED (PRN)
  11. IBUPROFEN [Concomitant]
     Active Substance: IBUPROFEN
     Dosage: 200 MG, AS NEEDED (PRN)
  12. CIPROFLOXACIN [Concomitant]
     Active Substance: CIPROFLOXACIN
     Dosage: 4 DROP IN EACH EAR
  13. MORPHINE [Concomitant]
     Active Substance: MORPHINE
     Dosage: 1 MG/ML (TAKE 6.7ML, PRN)

REACTIONS (12)
  - Syncope [Unknown]
  - Arthralgia [Unknown]
  - Sleep disorder [Unknown]
  - Dizziness [Unknown]
  - Anxiety [Unknown]
  - Stress [Unknown]
  - Blood parathyroid hormone increased [Recovering/Resolving]
  - Mean cell haemoglobin concentration increased [Unknown]
  - Mean cell volume decreased [Unknown]
  - Monocyte count increased [Recovered/Resolved]
  - Red cell distribution width decreased [Unknown]
  - Lymphocyte count increased [Unknown]

NARRATIVE: CASE EVENT DATE: 20230101
